FAERS Safety Report 19070210 (Version 2)
Quarter: 2021Q2

REPORT INFORMATION
  Report Type: Spontaneous
  Country: FR (occurrence: FR)
  Receive Date: 20210329
  Receipt Date: 20210401
  Transmission Date: 20210717
  Serious: Yes (Death, Hospitalization, Other)
  Sender: FDA-Public Use
  Company Number: FR-REGENERON PHARMACEUTICALS, INC.-2021-37952

PATIENT

DRUGS (1)
  1. LIBTAYO [Suspect]
     Active Substance: CEMIPLIMAB-RWLC
     Indication: SQUAMOUS CELL CARCINOMA OF SKIN
     Dosage: INFUSION
     Route: 042

REACTIONS (8)
  - Transaminases increased [Unknown]
  - Blood creatine phosphokinase increased [Fatal]
  - Condition aggravated [Fatal]
  - Autoimmune hepatitis [Unknown]
  - Motor dysfunction [Fatal]
  - Myositis [Fatal]
  - Myalgia [Fatal]
  - Respiratory failure [Fatal]
